FAERS Safety Report 9373295 (Version 1)
Quarter: 2013Q2

REPORT INFORMATION
  Report Type: Spontaneous
  Country: FR (occurrence: FR)
  Receive Date: 20130627
  Receipt Date: 20130627
  Transmission Date: 20140414
  Serious: Yes (Hospitalization)
  Sender: FDA-Public Use
  Company Number: FR-TEVA-413519ISR

PATIENT
  Age: 15 Year
  Sex: 0

DRUGS (1)
  1. TRAMADOL [Suspect]
     Route: 048

REACTIONS (2)
  - Coma [Unknown]
  - Toxicity to various agents [Unknown]
